FAERS Safety Report 14413561 (Version 1)
Quarter: 2018Q1

REPORT INFORMATION
  Report Type: Spontaneous
  Country: US (occurrence: US)
  Receive Date: 20180118
  Receipt Date: 20180118
  Transmission Date: 20180509
  Serious: Yes (Other)
  Sender: FDA-Public Use
  Company Number: None

PATIENT
  Age: 74 Year
  Sex: Female
  Weight: 63 kg

DRUGS (20)
  1. VITAMIN B12 [Concomitant]
     Active Substance: CYANOCOBALAMIN
  2. LIDOCAINE. [Concomitant]
     Active Substance: LIDOCAINE
  3. ACYCLOVIR. [Concomitant]
     Active Substance: ACYCLOVIR
  4. ASPIRIN. [Concomitant]
     Active Substance: ASPIRIN
  5. OMEPRAZOLE. [Concomitant]
     Active Substance: OMEPRAZOLE
  6. BACTRIM DS [Concomitant]
     Active Substance: SULFAMETHOXAZOLE\TRIMETHOPRIM
  7. HYDROCODONE-APAP [Concomitant]
     Active Substance: ACETAMINOPHEN\HYDROCODONE
  8. FEXOFENADINE [Concomitant]
     Active Substance: FEXOFENADINE\FEXOFENADINE HYDROCHLORIDE
  9. REVLIMID [Concomitant]
     Active Substance: LENALIDOMIDE
  10. DICLOFENAC [Concomitant]
     Active Substance: DICLOFENAC
  11. PROCHLORPERAZINE. [Concomitant]
     Active Substance: PROCHLORPERAZINE
  12. HYPROMELLOSE [Concomitant]
     Active Substance: HYPROMELLOSES
  13. BISOPROLOL [Concomitant]
     Active Substance: BISOPROLOL
  14. VITAMIN D [Concomitant]
     Active Substance: CHOLECALCIFEROL
  15. TRAMADOL. [Concomitant]
     Active Substance: TRAMADOL
  16. NINLARO [Suspect]
     Active Substance: IXAZOMIB CITRATE
     Indication: PLASMA CELL MYELOMA
     Dosage: ?          OTHER FREQUENCY:WEEKLY;?
     Route: 048
     Dates: start: 20160321
  17. DEXAMETHASONE. [Concomitant]
     Active Substance: DEXAMETHASONE
  18. DOCUSATE [Concomitant]
     Active Substance: DOCUSATE
  19. ZOLPIDEM TARTRATE. [Concomitant]
     Active Substance: ZOLPIDEM TARTRATE
  20. CYCLOBENZAPRINE. [Concomitant]
     Active Substance: CYCLOBENZAPRINE

REACTIONS (2)
  - Laryngospasm [None]
  - Product physical issue [None]

NARRATIVE: CASE EVENT DATE: 20180118
